APPROVED DRUG PRODUCT: VALSARTAN
Active Ingredient: VALSARTAN
Strength: 160MG
Dosage Form/Route: TABLET;ORAL
Application: A209261 | Product #003
Applicant: UNICHEM LABORATORIES LTD
Approved: May 4, 2018 | RLD: No | RS: No | Type: DISCN